FAERS Safety Report 25272364 (Version 1)
Quarter: 2025Q2

REPORT INFORMATION
  Report Type: Spontaneous
  Country: US (occurrence: US)
  Receive Date: 20250506
  Receipt Date: 20250506
  Transmission Date: 20250717
  Serious: Yes (Hospitalization)
  Sender: SANOFI AVENTIS
  Company Number: US-SA-2025SA129153

PATIENT
  Age: 64 Year
  Sex: Male

DRUGS (3)
  1. KEVZARA [Suspect]
     Active Substance: SARILUMAB
     Indication: Polymyalgia rheumatica
     Dosage: 200 MG, Q12W
     Route: 058
  2. EVEROLIMUS [Concomitant]
     Active Substance: EVEROLIMUS
  3. LENVIMA [Concomitant]
     Active Substance: LENVATINIB

REACTIONS (11)
  - Duodenitis [Unknown]
  - Abdominal pain upper [Unknown]
  - Decreased appetite [Unknown]
  - Nausea [Unknown]
  - Taste disorder [Unknown]
  - Weight decreased [Unknown]
  - Hypertension [Unknown]
  - Skin swelling [Unknown]
  - Acne [Unknown]
  - Rash [Unknown]
  - Inappropriate schedule of product administration [Unknown]
